FAERS Safety Report 9113666 (Version 3)
Quarter: 2013Q1

REPORT INFORMATION
  Report Type: Spontaneous
  Country: US (occurrence: US)
  Receive Date: 20130129
  Receipt Date: 20130305
  Transmission Date: 20140127
  Serious: No
  Sender: FDA-Public Use
  Company Number: US-PFIZER INC-2013034962

PATIENT
  Age: 72 Year
  Sex: Male
  Weight: 86.2 kg

DRUGS (3)
  1. NEURONTIN [Suspect]
     Indication: BURNING SENSATION
     Dosage: 300 MG, 4X/DAY
  2. NEURONTIN [Suspect]
     Indication: HYPOAESTHESIA
  3. NEURONTIN [Suspect]
     Indication: DIABETIC NEUROPATHY

REACTIONS (1)
  - Drug ineffective [Unknown]
